FAERS Safety Report 12572646 (Version 1)
Quarter: 2016Q3

REPORT INFORMATION
  Report Type: Spontaneous
  Country: US (occurrence: US)
  Receive Date: 20160720
  Receipt Date: 20160720
  Transmission Date: 20161109
  Serious: No
  Sender: FDA-Public Use
  Company Number: US-BIOGEN-2016BI00264135

PATIENT
  Sex: Female

DRUGS (1)
  1. AVONEX [Suspect]
     Active Substance: INTERFERON BETA-1A
     Indication: MULTIPLE SCLEROSIS
     Route: 030
     Dates: start: 20150204

REACTIONS (6)
  - Drug dose omission [Not Recovered/Not Resolved]
  - Sensory disturbance [Unknown]
  - Feeling abnormal [Not Recovered/Not Resolved]
  - Eye disorder [Recovered/Resolved]
  - Dizziness [Unknown]
  - Bone pain [Unknown]
